FAERS Safety Report 7999638 (Version 10)
Quarter: 2014Q2

REPORT INFORMATION
  Report Type: Report from Study
  Country: JP (occurrence: JP)
  Receive Date: 20110621
  Receipt Date: 20140617
  Transmission Date: 20141212
  Serious: Yes (Death, Other)
  Sender: FDA-Public Use
  Company Number: JP-ROCHE-783515

PATIENT
  Age: 71 Year
  Sex: Female

DRUGS (21)
  1. BEVACIZUMAB [Suspect]
     Indication: LUNG ADENOCARCINOMA
     Route: 041
     Dates: start: 20110301, end: 20110301
  2. BEVACIZUMAB [Suspect]
     Route: 041
     Dates: start: 20110323, end: 20110323
  3. BEVACIZUMAB [Suspect]
     Route: 041
     Dates: start: 20110413, end: 20110413
  4. BEVACIZUMAB [Suspect]
     Route: 041
     Dates: start: 20110510, end: 20110510
  5. CISPLATIN [Concomitant]
     Indication: LUNG ADENOCARCINOMA
     Route: 041
     Dates: start: 20110301, end: 20110301
  6. CISPLATIN [Concomitant]
     Route: 041
     Dates: start: 20110323, end: 20110323
  7. CISPLATIN [Concomitant]
     Route: 041
     Dates: start: 20110413, end: 20110413
  8. CISPLATIN [Concomitant]
     Route: 041
     Dates: start: 20110510, end: 20110510
  9. DOCETAXEL [Concomitant]
     Indication: LUNG ADENOCARCINOMA
     Dosage: REPORTED AS DOCETAXEL HYDRATE
     Route: 041
     Dates: start: 20110301, end: 20110301
  10. DOCETAXEL [Concomitant]
     Route: 041
     Dates: start: 20110323, end: 20110323
  11. DOCETAXEL [Concomitant]
     Route: 041
     Dates: start: 20110413, end: 20110413
  12. DOCETAXEL [Concomitant]
     Route: 041
     Dates: start: 20110510, end: 20110510
  13. EMEND [Concomitant]
     Indication: PROPHYLAXIS OF NAUSEA AND VOMITING
     Route: 048
     Dates: start: 20110301, end: 20110301
  14. EMEND [Concomitant]
     Route: 048
     Dates: start: 20110302, end: 20110303
  15. EMEND [Concomitant]
     Route: 048
     Dates: start: 20110323, end: 20110323
  16. EMEND [Concomitant]
     Route: 048
     Dates: start: 20110324, end: 20110325
  17. EMEND [Concomitant]
     Route: 048
     Dates: start: 20110413, end: 20110413
  18. EMEND [Concomitant]
     Route: 048
     Dates: start: 20110414, end: 20110415
  19. EMEND [Concomitant]
     Route: 048
     Dates: start: 20110510, end: 20110510
  20. EMEND [Concomitant]
     Route: 048
     Dates: start: 20110511, end: 20110512
  21. D-MANNITOL [Concomitant]
     Dosage: DOSAGE IS UNCERTAIN.
     Route: 042

REACTIONS (5)
  - Cardio-respiratory arrest [Fatal]
  - Asphyxia [Fatal]
  - Pulmonary alveolar haemorrhage [Fatal]
  - Neutrophil count decreased [Recovered/Resolved]
  - Neutrophil count decreased [Recovered/Resolved]
